FAERS Safety Report 6266913-3 (Version None)
Quarter: 2009Q3

REPORT INFORMATION
  Report Type: 
  Country: None (occurrence: None)
  Receive Date: 20090714
  Receipt Date: 20090702
  Transmission Date: 20100115
  Serious: Yes (Other)
  Sender: FDA-Public Use
  Company Number: PHHY2009AU28116

PATIENT
  Age: 59 Year
  Sex: Female

DRUGS (5)
  1. ESTALIS CONTINUOUS [Suspect]
     Dosage: 50/140
     Route: 062
  2. ESTALIS CONTINUOUS [Suspect]
     Dosage: 1 DF, QW2
     Route: 062
  3. ESTALIS CONTINUOUS [Suspect]
     Dosage: 0.5 DF, QW2
     Route: 062
     Dates: end: 20090701
  4. ACETAMINOPHEN W/ CODEINE [Concomitant]
     Indication: MIGRAINE
  5. NUROFEN PLUS [Concomitant]

REACTIONS (8)
  - BLOOD CHOLESTEROL INCREASED [None]
  - CHEST PAIN [None]
  - CONDITION AGGRAVATED [None]
  - DEPRESSION [None]
  - FLUID RETENTION [None]
  - MIGRAINE [None]
  - NAUSEA [None]
  - NERVOUSNESS [None]
